FAERS Safety Report 7259538-4 (Version None)
Quarter: 2011Q1

REPORT INFORMATION
  Report Type: 
  Country: None (occurrence: None)
  Receive Date: 20110129
  Receipt Date: 20100219
  Transmission Date: 20110831
  Serious: Yes (Hospitalization, Other)
  Sender: FDA-Public Use
  Company Number: US-PFIZER INC-2010022429

PATIENT
  Sex: Male
  Weight: 95.238 kg

DRUGS (4)
  1. LEXAPRO [Concomitant]
     Indication: DEPRESSION
     Dosage: 20 MG, 1X/DAY
     Route: 048
     Dates: start: 20090501
  2. TRAZODONE [Concomitant]
     Dosage: UNK
     Route: 048
     Dates: start: 20090501
  3. SEROQUEL [Concomitant]
     Dosage: UNK
     Route: 048
     Dates: start: 20090501
  4. RELPAX [Suspect]
     Indication: MIGRAINE
     Dosage: 40 MG, 1X/DAY
     Route: 048
     Dates: start: 20100215, end: 20100215

REACTIONS (1)
  - SEROTONIN SYNDROME [None]
